FAERS Safety Report 19878909 (Version 1)
Quarter: 2021Q3

REPORT INFORMATION
  Report Type: Spontaneous
  Country: US (occurrence: US)
  Receive Date: 20210922
  Receipt Date: 20210922
  Transmission Date: 20211014
  Serious: Yes (Hospitalization)
  Sender: FDA-Public Use
  Company Number: None

PATIENT
  Age: 66 Year
  Sex: Female

DRUGS (1)
  1. AMBRISENTAN 10MG TABLETS 30/BO: 10MG [Suspect]
     Active Substance: AMBRISENTAN
     Indication: PULMONARY HYPERTENSION
     Route: 048
     Dates: start: 20170815

REACTIONS (5)
  - Weight increased [None]
  - Generalised oedema [None]
  - Cellulitis [None]
  - Haemostasis [None]
  - Right ventricular failure [None]

NARRATIVE: CASE EVENT DATE: 20210820
